FAERS Safety Report 14295981 (Version 1)
Quarter: 2017Q4

REPORT INFORMATION
  Report Type: Report from Study
  Country: MX (occurrence: MX)
  Receive Date: 20171218
  Receipt Date: 20171218
  Transmission Date: 20180321
  Serious: Yes (Death)
  Sender: FDA-Public Use
  Company Number: MX-JNJFOC-20171218687

PATIENT
  Age: 47 Year
  Sex: Male
  Weight: 78 kg

DRUGS (3)
  1. RISPERIDONE. [Concomitant]
     Active Substance: RISPERIDONE
     Indication: SCHIZOPHRENIA
     Dosage: MAY BE STARTED 8 YEARS FROM THE TIME OF THIS REPORT
     Route: 065
     Dates: start: 2009
  2. HALOPERIDOL. [Suspect]
     Active Substance: HALOPERIDOL
     Indication: SCHIZOPHRENIA
     Route: 042
     Dates: start: 20170212, end: 20170212
  3. CLONAZEPAN [Concomitant]
     Active Substance: CLONAZEPAM
     Dosage: MAY BE STARTED 5 YEARS FROM THE TIME OF THIS REPORT
     Route: 065
     Dates: start: 2012

REACTIONS (2)
  - Psychotic disorder [Fatal]
  - Completed suicide [Fatal]

NARRATIVE: CASE EVENT DATE: 201712
